FAERS Safety Report 23064577 (Version 3)
Quarter: 2025Q2

REPORT INFORMATION
  Report Type: Spontaneous
  Country: IT (occurrence: IT)
  Receive Date: 20231013
  Receipt Date: 20250403
  Transmission Date: 20250717
  Serious: Yes (Other)
  Sender: CHIESI
  Company Number: IT-AMRYT PHARMACEUTICALS DAC-AEGR006613

PATIENT
  Age: 67 Year
  Sex: Female
  Weight: 82.998 kg

DRUGS (19)
  1. METRELEPTIN [Suspect]
     Active Substance: METRELEPTIN
     Indication: Familial partial lipodystrophy
     Dates: start: 2022
  2. METRELEPTIN [Suspect]
     Active Substance: METRELEPTIN
     Dosage: 5 MILLIGRAM, QD
     Dates: start: 20220718
  3. METRELEPTIN [Suspect]
     Active Substance: METRELEPTIN
     Dosage: 7.5 MILLIGRAM, QD
  4. INSULIN ASPART [Concomitant]
     Active Substance: INSULIN ASPART
     Indication: Type 2 diabetes mellitus
     Dosage: 68 INTERNATIONAL UNIT, TID
     Dates: start: 20210831
  5. INSULIN GLARGINE [Concomitant]
     Active Substance: INSULIN GLARGINE
     Indication: Type 2 diabetes mellitus
     Dosage: 80 INTERNATIONAL UNIT, QD
     Dates: start: 20210831
  6. DAPAGLIFLOZIN [Concomitant]
     Active Substance: DAPAGLIFLOZIN
     Indication: Type 2 diabetes mellitus
     Dosage: 10 MICROGRAM, QD
     Dates: start: 20230926
  7. SEMAGLUTIDE [Concomitant]
     Active Substance: SEMAGLUTIDE
     Indication: Type 2 diabetes mellitus
     Dates: start: 20201204
  8. ALLOPURINOL [Concomitant]
     Active Substance: ALLOPURINOL
     Indication: Blood uric acid
     Dosage: 300 MICROGRAM, QD
     Dates: start: 20180807
  9. FENOFIBRATE [Concomitant]
     Active Substance: FENOFIBRATE
     Indication: Hypertriglyceridaemia
     Dosage: 145 MICROGRAM, QD
     Dates: start: 20170202
  10. LYRICA [Concomitant]
     Active Substance: PREGABALIN
     Indication: Polyneuropathy
     Dosage: 75 MICROGRAM, BID
     Dates: start: 20220825
  11. AMLODIPINE\VALSARTAN [Concomitant]
     Active Substance: AMLODIPINE\VALSARTAN
     Indication: Hypertension
     Dosage: UNK UNK, QD
     Dates: start: 20230926
  12. CHOLECALCIFEROL [Concomitant]
     Active Substance: CHOLECALCIFEROL
     Indication: Vitamin D deficiency
     Dates: start: 20220322
  13. BISOPROLOL [Concomitant]
     Active Substance: BISOPROLOL
     Indication: Hypertension
     Dosage: 5 MICROGRAM, QD
     Dates: start: 20160726
  14. ATORVASTATIN [Concomitant]
     Active Substance: ATORVASTATIN
     Indication: Dyslipidaemia
     Dosage: 20 MICROGRAM, QD
     Dates: start: 20140124
  15. FISH OIL [Concomitant]
     Active Substance: FISH OIL
     Indication: Dyslipidaemia
     Dosage: 4000 MICROGRAM, QD
     Dates: start: 20180807
  16. OMEPRAZOLE [Concomitant]
     Active Substance: OMEPRAZOLE
     Indication: Gastritis
     Dosage: 20 MICROGRAM, QD
     Dates: start: 20180807
  17. ASPIRIN [Concomitant]
     Active Substance: ASPIRIN
     Indication: Prophylaxis
     Dosage: 100 MICROGRAM, QD
  18. LEVOTHYROXINE [Concomitant]
     Active Substance: LEVOTHYROXINE
     Indication: Hypothyroidism
     Dosage: 50 MICROGRAM, QD
     Dates: start: 20121025
  19. FUROSEMIDE [Concomitant]
     Active Substance: FUROSEMIDE
     Indication: Hypertension
     Dosage: 25 MICROGRAM, QD
     Dates: start: 20170802

REACTIONS (9)
  - Metabolic dysfunction-associated steatohepatitis [Unknown]
  - Diabetes mellitus [Unknown]
  - Hepatomegaly [Unknown]
  - Hepatic steatosis [Unknown]
  - Blood triglycerides increased [Not Recovered/Not Resolved]
  - Glycosylated haemoglobin increased [Not Recovered/Not Resolved]
  - Insulin resistance [Unknown]
  - Drug specific antibody present [Unknown]
  - Drug ineffective [Not Recovered/Not Resolved]

NARRATIVE: CASE EVENT DATE: 20230601
